FAERS Safety Report 10367442 (Version 2)
Quarter: 2014Q3

REPORT INFORMATION
  Report Type: Spontaneous
  Country: US (occurrence: US)
  Receive Date: 20140807
  Receipt Date: 20140909
  Transmission Date: 20150326
  Serious: Yes (Other)
  Sender: FDA-Public Use
  Company Number: US-ROCHE-1446526

PATIENT
  Age: 79 Year
  Sex: Female
  Weight: 55.7 kg

DRUGS (35)
  1. AVASTIN [Suspect]
     Active Substance: BEVACIZUMAB
     Dosage: CYCLE 4
     Route: 042
     Dates: start: 20140528
  2. ADRUCIL [Concomitant]
     Active Substance: FLUOROURACIL
     Route: 065
     Dates: start: 20140528
  3. PEPCID [Concomitant]
     Active Substance: FAMOTIDINE
     Route: 042
     Dates: start: 20140408
  4. ATIVAN [Concomitant]
     Active Substance: LORAZEPAM
     Route: 065
     Dates: start: 20140408
  5. LOSARTAN/HCTZ [Concomitant]
     Active Substance: HYDROCHLOROTHIAZIDE\LOSARTAN
     Dosage: 50-12.5 (UNITS NOT REPORTED)
     Route: 065
  6. TYLENOL [Concomitant]
     Active Substance: ACETAMINOPHEN
     Route: 065
  7. AVASTIN [Suspect]
     Active Substance: BEVACIZUMAB
     Dosage: CYCLE 2
     Route: 065
     Dates: start: 20140422
  8. COMPAZINE [Concomitant]
     Active Substance: PROCHLORPERAZINE MALEATE
     Route: 065
  9. CALCIUM GLUCONATE. [Concomitant]
     Active Substance: CALCIUM GLUCONATE
  10. AVASTIN [Suspect]
     Active Substance: BEVACIZUMAB
     Dosage: CYCLE 6
     Route: 042
     Dates: start: 20140624
  11. ELOXATIN [Concomitant]
     Active Substance: OXALIPLATIN
     Route: 065
     Dates: start: 20140408
  12. ADRUCIL [Concomitant]
     Active Substance: FLUOROURACIL
     Route: 065
     Dates: start: 20140709
  13. ADRUCIL [Concomitant]
     Active Substance: FLUOROURACIL
     Route: 065
     Dates: start: 20140506
  14. LEUCOVORIN [Concomitant]
     Active Substance: LEUCOVORIN
     Route: 065
     Dates: start: 20140408
  15. ZANTAC [Concomitant]
     Active Substance: RANITIDINE HYDROCHLORIDE
     Route: 065
     Dates: start: 20140611
  16. AVASTIN [Suspect]
     Active Substance: BEVACIZUMAB
     Dosage: 285 MG, CYCLE 3
     Route: 042
     Dates: start: 20140506, end: 20140709
  17. ELOXATIN [Concomitant]
     Active Substance: OXALIPLATIN
     Dosage: 128-131 MG
     Route: 065
     Dates: start: 20140528
  18. ELOXATIN [Concomitant]
     Active Substance: OXALIPLATIN
     Route: 065
     Dates: start: 20140709
  19. ADRUCIL [Concomitant]
     Active Substance: FLUOROURACIL
     Route: 065
     Dates: start: 20140506
  20. XANAX [Concomitant]
     Active Substance: ALPRAZOLAM
     Route: 065
  21. AVASTIN [Suspect]
     Active Substance: BEVACIZUMAB
     Dosage: CYCLE 7
     Route: 042
     Dates: start: 20140709
  22. KYTRIL [Suspect]
     Active Substance: GRANISETRON HYDROCHLORIDE
     Indication: PRODUCT USED FOR UNKNOWN INDICATION
     Route: 065
  23. ELOXATIN [Concomitant]
     Active Substance: OXALIPLATIN
     Route: 065
     Dates: start: 20140506
  24. ADRUCIL [Concomitant]
     Active Substance: FLUOROURACIL
     Route: 065
     Dates: start: 20140408
  25. AMLODIPINE [Concomitant]
     Active Substance: AMLODIPINE BESYLATE
     Route: 065
  26. ALOXI [Concomitant]
     Active Substance: PALONOSETRON HYDROCHLORIDE
     Route: 065
     Dates: start: 20140408
  27. MAGNESIUM SULFATE [Concomitant]
     Active Substance: MAGNESIUM SULFATE
     Route: 065
     Dates: start: 20140520
  28. AVASTIN [Suspect]
     Active Substance: BEVACIZUMAB
     Indication: COLON CANCER
     Dosage: CYCLE 1
     Route: 065
     Dates: start: 20140408
  29. AVASTIN [Suspect]
     Active Substance: BEVACIZUMAB
     Dosage: CYCLE 5
     Route: 042
     Dates: start: 20140611
  30. ADRUCIL [Concomitant]
     Active Substance: FLUOROURACIL
     Dosage: 625-3700 MG
     Route: 065
     Dates: start: 20140528
  31. ADRUCIL [Concomitant]
     Active Substance: FLUOROURACIL
     Route: 065
     Dates: start: 20140408
  32. POTASSIUM CHLORIDE. [Concomitant]
     Active Substance: POTASSIUM CHLORIDE
     Route: 065
     Dates: start: 20140520
  33. DECADRON [Concomitant]
     Active Substance: DEXAMETHASONE
     Route: 065
     Dates: start: 20140408
  34. ZOFRAN [Concomitant]
     Active Substance: ONDANSETRON HYDROCHLORIDE
     Route: 065
     Dates: start: 20140423
  35. LATANOPROST. [Concomitant]
     Active Substance: LATANOPROST
     Dosage: 1/1 DROP EACH EYE DAILY
     Route: 065

REACTIONS (1)
  - Cerebrovascular accident [Recovering/Resolving]

NARRATIVE: CASE EVENT DATE: 20140715
